FAERS Safety Report 9104015 (Version 1)
Quarter: 2013Q1

REPORT INFORMATION
  Report Type: Report from Study
  Country: NZ (occurrence: NZ)
  Receive Date: 20130219
  Receipt Date: 20130219
  Transmission Date: 20140127
  Serious: Yes (Life-Threatening, Hospitalization, Other)
  Sender: FDA-Public Use
  Company Number: PHHY2013NZ009066

PATIENT
  Age: 49 Year
  Sex: Male

DRUGS (5)
  1. CLOZARIL [Suspect]
     Indication: PSYCHOTIC DISORDER
     Dosage: 450 MG (NOCTE)
     Route: 048
     Dates: start: 20021208, end: 20121221
  2. LITHIUM CARBONATE [Concomitant]
     Indication: MOOD ALTERED
     Dosage: 1200 MG, QD (NOCTE)
     Route: 048
     Dates: start: 20111215
  3. SODIUM VALPROATE [Concomitant]
     Indication: MOOD ALTERED
     Dosage: 1500 MG, QD (NOCTE)
     Route: 048
     Dates: start: 20111215
  4. OMEPRAZOLE [Concomitant]
     Dosage: 20 MG, QD (MANE)
     Route: 048
  5. SIMVASTATIN [Concomitant]
     Indication: HYPERLIPIDAEMIA
     Dosage: 40 MG, QD (NOCTE)
     Route: 048

REACTIONS (6)
  - Colitis ischaemic [Unknown]
  - Colitis [Unknown]
  - Abdominal pain [Unknown]
  - Haematochezia [Unknown]
  - Diarrhoea [Unknown]
  - Constipation [Recovered/Resolved with Sequelae]
